FAERS Safety Report 10067527 (Version 2)
Quarter: 2014Q2

REPORT INFORMATION
  Report Type: Spontaneous
  Country: IT (occurrence: None)
  Receive Date: 20140407
  Receipt Date: 20140521
  Transmission Date: 20141212
  Serious: Yes (Hospitalization)
  Sender: FDA-Public Use
  Company Number: AUR-APL-2014-04120

PATIENT
  Age: 37 Year
  Sex: Female

DRUGS (1)
  1. AMOXICILLIN (AMOXICILLIN) [Suspect]
     Indication: EAR INFECTION
     Dosage: (2 GM, 1 D)
     Route: 048
     Dates: start: 20140302, end: 20140309

REACTIONS (4)
  - Pruritus [None]
  - Dyspnoea [None]
  - Oedema peripheral [None]
  - Pruritus generalised [None]
